FAERS Safety Report 16283060 (Version 1)
Quarter: 2019Q2

REPORT INFORMATION
  Report Type: Spontaneous
  Country: US (occurrence: US)
  Receive Date: 20190507
  Receipt Date: 20190507
  Transmission Date: 20190711
  Serious: Yes (Other)
  Sender: FDA-Public Use
  Company Number: US-SAGENT PHARMACEUTICALS-2019SAG000858

PATIENT

DRUGS (5)
  1. DIPHENHYDRAMINE. [Concomitant]
     Active Substance: DIPHENHYDRAMINE
     Indication: SCHIZOPHRENIA
     Dosage: 50 MG, ONCE
     Route: 030
  2. HALOPERIDOL. [Concomitant]
     Active Substance: HALOPERIDOL
     Dosage: 5 MG, QD
     Route: 048
  3. HALOPERIDOL LACTATE. [Suspect]
     Active Substance: HALOPERIDOL LACTATE
     Indication: SCHIZOPHRENIA
     Dosage: 5 MG, ONCE
     Route: 030
  4. HALOPERIDOL. [Concomitant]
     Active Substance: HALOPERIDOL
     Indication: PSYCHOTIC DISORDER
     Dosage: 5 MG, BID
     Route: 048
  5. DIPHENHYDRAMINE. [Concomitant]
     Active Substance: DIPHENHYDRAMINE
     Indication: EXTRAPYRAMIDAL DISORDER
     Dosage: 25 MG, BID
     Route: 048

REACTIONS (1)
  - Retinitis pigmentosa [Unknown]
